FAERS Safety Report 8154043-5 (Version None)
Quarter: 2012Q1

REPORT INFORMATION
  Report Type: 
  Country: None (occurrence: None)
  Receive Date: 20120221
  Receipt Date: 20120214
  Transmission Date: 20120608
  Serious: Yes (Other)
  Sender: FDA-Public Use
  Company Number: US-JNJFOC-20120207418

PATIENT
  Sex: Female
  Weight: 74.39 kg

DRUGS (1)
  1. NORGESTIMATE AND ETHINYL ESTRADIOL [Suspect]
     Indication: CONTRACEPTION
     Route: 048
     Dates: start: 20100801

REACTIONS (3)
  - VISION BLURRED [None]
  - MULTIPLE SCLEROSIS [None]
  - HYPOAESTHESIA [None]
